FAERS Safety Report 14588340 (Version 1)
Quarter: 2018Q1

REPORT INFORMATION
  Report Type: Spontaneous
  Country: RU (occurrence: RU)
  Receive Date: 20180301
  Receipt Date: 20180301
  Transmission Date: 20180509
  Serious: Yes (Hospitalization, Other)
  Sender: FDA-Public Use
  Company Number: RU-ARALEZ PHARMACEUTICALS R+D INC.-2018-ARA-000485

PATIENT
  Age: 59 Year
  Sex: Male
  Weight: 90 kg

DRUGS (7)
  1. METOPROLOL SUCCINATE. [Suspect]
     Active Substance: METOPROLOL SUCCINATE
     Indication: PRODUCT USED FOR UNKNOWN INDICATION
     Dosage: UNK
     Route: 048
     Dates: start: 201709
  2. LOZAP                              /01121602/ [Concomitant]
     Active Substance: LOSARTAN POTASSIUM
     Indication: PRODUCT USED FOR UNKNOWN INDICATION
     Dosage: UNK
  3. GLYCINE. [Concomitant]
     Active Substance: GLYCINE
     Indication: PRODUCT USED FOR UNKNOWN INDICATION
     Dosage: UNK
  4. ROSUVASTATIN. [Concomitant]
     Active Substance: ROSUVASTATIN
     Indication: PRODUCT USED FOR UNKNOWN INDICATION
     Dosage: UNK
  5. CAPOTEN [Concomitant]
     Active Substance: CAPTOPRIL
     Indication: PRODUCT USED FOR UNKNOWN INDICATION
     Dosage: UNK
  6. ASPIRIN CARDIO [Concomitant]
     Active Substance: ASPIRIN
     Indication: PRODUCT USED FOR UNKNOWN INDICATION
     Dosage: UNK
  7. BRILINTA [Suspect]
     Active Substance: TICAGRELOR
     Indication: MYOCARDIAL INFARCTION
     Dosage: 90 MG, BID
     Route: 048
     Dates: start: 201709

REACTIONS (4)
  - Headache [Not Recovered/Not Resolved]
  - Blood cholesterol increased [Not Recovered/Not Resolved]
  - Blood pressure increased [Not Recovered/Not Resolved]
  - Blood glucose increased [Not Recovered/Not Resolved]

NARRATIVE: CASE EVENT DATE: 201709
